FAERS Safety Report 5126656-6 (Version None)
Quarter: 2006Q4

REPORT INFORMATION
  Report Type: 
  Country: None (occurrence: None)
  Receive Date: 20061010
  Receipt Date: 20060921
  Transmission Date: 20070319
  Serious: Yes (Other)
  Sender: FDA-Public Use
  Company Number: 2006121153

PATIENT
  Sex: Male

DRUGS (13)
  1. TAHOR (ATORVASTATIN) [Suspect]
  2. CLOPIDOGREL BISULFATE [Concomitant]
  3. METFORMIN HCL [Concomitant]
  4. GLIMEPIRIDE [Concomitant]
  5. INSULIN GLARGINE (INSULIN GLARGINE) [Concomitant]
  6. VERAPAMIL HCL [Concomitant]
  7. CLONAZEPAM [Concomitant]
  8. AMITRIPTYLINE HYDROCHLORIDE [Concomitant]
  9. NITROGLYCERIN [Concomitant]
  10. VENLAFAXINE HCL [Concomitant]
  11. HYDROXYZINE HCL [Concomitant]
  12. ACEPROMAZINE (ACEPROMAZINE) [Concomitant]
  13. ALIMEMAZINE TARTRATE (ALIMEMAZINE TARTRATE) [Concomitant]

REACTIONS (2)
  - MYALGIA [None]
  - PAIN IN EXTREMITY [None]
